FAERS Safety Report 13183682 (Version 2)
Quarter: 2017Q2

REPORT INFORMATION
  Report Type: Spontaneous
  Country: US (occurrence: US)
  Receive Date: 20170203
  Receipt Date: 20170601
  Transmission Date: 20170830
  Serious: Yes (Other)
  Sender: FDA-Public Use
  Company Number: US-DRREDDYS-USA/USA/17/0086589

PATIENT
  Age: 67 Year
  Sex: Female
  Weight: 69.85 kg

DRUGS (1)
  1. FEXOFENADINE HCL 60 MG AND PSEUDOEPHEDRINE HCL ER 120 MG [Suspect]
     Active Substance: FEXOFENADINE HYDROCHLORIDE\PSEUDOEPHEDRINE HYDROCHLORIDE
     Indication: HYPERSENSITIVITY
     Route: 048
     Dates: start: 20170118

REACTIONS (5)
  - Choking [Unknown]
  - Oropharyngeal pain [Recovering/Resolving]
  - Foreign body [Unknown]
  - Dysphonia [Unknown]
  - Product use complaint [Unknown]
